FAERS Safety Report 24985008 (Version 1)
Quarter: 2025Q1

REPORT INFORMATION
  Report Type: Spontaneous
  Country: GB (occurrence: GB)
  Receive Date: 20250219
  Receipt Date: 20250219
  Transmission Date: 20250409
  Serious: Yes (Other)
  Sender: MYLAN
  Company Number: GB-MYLANLABS-2025M1013842

PATIENT
  Age: 82 Year
  Sex: Male

DRUGS (2)
  1. LUSTRAL [Suspect]
     Active Substance: SERTRALINE HYDROCHLORIDE
     Indication: Product used for unknown indication
     Route: 065
     Dates: start: 202501, end: 2025
  2. LUSTRAL [Suspect]
     Active Substance: SERTRALINE HYDROCHLORIDE
     Route: 065
     Dates: start: 2025

REACTIONS (11)
  - Suicidal ideation [Unknown]
  - Hallucination [Unknown]
  - Thinking abnormal [Unknown]
  - Euphoric mood [Unknown]
  - Paranoia [Unknown]
  - Somnambulism [Unknown]
  - Psychotic disorder [Unknown]
  - Apathy [Unknown]
  - Aggression [Unknown]
  - Mania [Unknown]
  - Therapy change [Unknown]

NARRATIVE: CASE EVENT DATE: 20250101
